FAERS Safety Report 6970293-5 (Version None)
Quarter: 2010Q3

REPORT INFORMATION
  Report Type: 
  Country: None (occurrence: None)
  Receive Date: 20100908
  Receipt Date: 20100831
  Transmission Date: 20110219
  Serious: Yes (Death, Hospitalization)
  Sender: FDA-Public Use
  Company Number: US-SANOFI-AVENTIS-2010SA047525

PATIENT
  Age: 71 Year
  Sex: Male
  Weight: 74.1 kg

DRUGS (9)
  1. JEVTANA KIT [Suspect]
     Indication: PROSTATE CANCER METASTATIC
     Route: 042
     Dates: start: 20100726, end: 20100726
  2. NEUPOGEN [Concomitant]
     Dosage: FOURTH AND FINAL DOSE GIVEN 30-JUL-2010
     Dates: start: 20100701, end: 20100730
  3. ALOXI [Concomitant]
     Indication: PREMEDICATION
  4. PEPCID [Concomitant]
     Indication: PREMEDICATION
  5. DIPHENHYDRAMINE HCL [Concomitant]
     Indication: PREMEDICATION
  6. DEXAMETHASONE [Concomitant]
     Indication: BACK PAIN
     Dates: start: 20100630
  7. DEXAMETHASONE [Concomitant]
     Dates: start: 20100630
  8. MS CONTIN [Concomitant]
     Indication: BACK PAIN
     Dates: start: 20100630
  9. MS CONTIN [Concomitant]
     Dates: start: 20100630

REACTIONS (20)
  - ACUTE MYOCARDIAL INFARCTION [None]
  - ANAEMIA [None]
  - COUGH [None]
  - DISEASE PROGRESSION [None]
  - DIZZINESS [None]
  - FEELING ABNORMAL [None]
  - HEPATIC ENZYME INCREASED [None]
  - HYPOCALCAEMIA [None]
  - HYPOTENSION [None]
  - ILEUS [None]
  - LETHARGY [None]
  - N-TERMINAL PROHORMONE BRAIN NATRIURETIC PEPTIDE [None]
  - NEUTROPENIC SEPSIS [None]
  - PANCREATITIS ACUTE [None]
  - PANCYTOPENIA [None]
  - PNEUMONIA [None]
  - PSEUDOMONAL BACTERAEMIA [None]
  - SINUS TACHYCARDIA [None]
  - THROMBOCYTOPENIA [None]
  - WHITE BLOOD CELL COUNT DECREASED [None]
